FAERS Safety Report 15812904 (Version 1)
Quarter: 2019Q1

REPORT INFORMATION
  Report Type: Report from Study
  Country: CA (occurrence: CA)
  Receive Date: 20190111
  Receipt Date: 20190111
  Transmission Date: 20190417
  Serious: Yes (Other)
  Sender: FDA-Public Use
  Company Number: CA-JNJFOC-20170713867

PATIENT
  Sex: Female

DRUGS (2)
  1. STELARA [Suspect]
     Active Substance: USTEKINUMAB
     Indication: PSORIASIS
     Dosage: AT WEEK 0, 4, 16, 28
     Route: 058
     Dates: start: 20170324
  2. STELARA [Suspect]
     Active Substance: USTEKINUMAB
     Indication: PSORIASIS
     Route: 058
     Dates: start: 20180212

REACTIONS (6)
  - Sputum discoloured [Not Recovered/Not Resolved]
  - Procedural pain [Not Recovered/Not Resolved]
  - Knee operation [Unknown]
  - Hypertension [Not Recovered/Not Resolved]
  - Cataract [Unknown]
  - Sinus congestion [Unknown]
